FAERS Safety Report 25461599 (Version 1)
Quarter: 2025Q2

REPORT INFORMATION
  Report Type: Other
  Country: FR (occurrence: FR)
  Receive Date: 20250620
  Receipt Date: 20250620
  Transmission Date: 20250716
  Serious: Yes (Death)
  Sender: INNOGENIX, LLC
  Company Number: FR-Innogenix, LLC-2179065

PATIENT
  Age: 37 Year
  Sex: Male

DRUGS (7)
  1. BACLOFEN [Suspect]
     Active Substance: BACLOFEN
     Indication: Alcoholism
  2. METHADONE [Suspect]
     Active Substance: METHADONE HYDROCHLORIDE
  3. NORDAZEPAM [Suspect]
     Active Substance: NORDAZEPAM
  4. DIAZEPAM [Suspect]
     Active Substance: DIAZEPAM
  5. PAROXETINE [Suspect]
     Active Substance: PAROXETINE
  6. ACETAMINOPHEN [Suspect]
     Active Substance: ACETAMINOPHEN
  7. 2-ETHYLIDENE-1,5-DIMETHYL-3,3-DIPHENYLPYRROLIDINE [Suspect]
     Active Substance: 2-ETHYLIDENE-1,5-DIMETHYL-3,3-DIPHENYLPYRROLIDINE

REACTIONS (2)
  - Toxicity to various agents [Fatal]
  - Product use in unapproved indication [Unknown]
